FAERS Safety Report 12328966 (Version 9)
Quarter: 2018Q3

REPORT INFORMATION
  Report Type: Report from Study
  Country: DE (occurrence: DE)
  Receive Date: 20160503
  Receipt Date: 20180920
  Transmission Date: 20181010
  Serious: Yes (Hospitalization)
  Sender: FDA-Public Use
  Company Number: DE-ROCHE-1749429

PATIENT
  Age: 85 Year
  Sex: Male
  Weight: 65 kg

DRUGS (25)
  1. LERCANIDIPINE [Concomitant]
     Active Substance: LERCANIDIPINE
     Indication: HYPERTENSION
     Route: 048
     Dates: start: 201006, end: 2016
  2. ALLOPURINOL. [Concomitant]
     Active Substance: ALLOPURINOL
     Route: 048
     Dates: start: 20151119
  3. UNACID [Concomitant]
     Indication: BRONCHITIS
     Route: 048
     Dates: start: 20160413, end: 20160417
  4. VALSARTAN. [Concomitant]
     Active Substance: VALSARTAN
     Route: 048
     Dates: start: 201006, end: 20160525
  5. VALSARTAN. [Concomitant]
     Active Substance: VALSARTAN
     Route: 048
  6. UNACID [Concomitant]
     Indication: RESPIRATORY TRACT INFECTION
     Route: 048
     Dates: start: 20160413, end: 20160424
  7. LEUPRORELIN [Concomitant]
     Active Substance: LEUPROLIDE ACETATE
     Dosage: 3 MONTHS
     Route: 058
     Dates: start: 201611
  8. VALSARTAN. [Concomitant]
     Active Substance: VALSARTAN
     Indication: HYPERTENSION
     Route: 048
     Dates: start: 1996
  9. FRAXIPARIN [Concomitant]
     Active Substance: NADROPARIN CALCIUM
     Indication: ATRIAL FIBRILLATION
     Route: 058
     Dates: start: 20151206, end: 20160615
  10. SALINE [Concomitant]
     Active Substance: SODIUM CHLORIDE
     Route: 042
     Dates: start: 20160329, end: 20160329
  11. VENETOCLAX. [Suspect]
     Active Substance: VENETOCLAX
     Indication: CHRONIC LYMPHOCYTIC LEUKAEMIA
     Dosage: MOST RECENT DOSE ON 24/APR/2016 AND INTERRUPTED ON 26/APR/2016
     Route: 048
     Dates: start: 20151228
  12. ALTEPLASE. [Concomitant]
     Active Substance: ALTEPLASE
     Indication: HYPERTENSION
     Route: 048
     Dates: start: 1996
  13. PREDNISOLON [Concomitant]
     Active Substance: PREDNISOLONE
     Route: 042
     Dates: start: 20160329, end: 20160329
  14. OBINUTUZUMAB. [Suspect]
     Active Substance: OBINUTUZUMAB
     Indication: CHRONIC LYMPHOCYTIC LEUKAEMIA
     Dosage: LAST DOSE PRIOR TO SAE ON 29/MAR/2016 AND INTERRUPTED ON 26/APR/2016
     Route: 042
     Dates: start: 20151204
  15. LAMIVUDINE. [Concomitant]
     Active Substance: LAMIVUDINE
     Indication: PROPHYLAXIS
     Route: 048
     Dates: start: 20151125
  16. LAMIVUDINE. [Concomitant]
     Active Substance: LAMIVUDINE
     Route: 048
     Dates: start: 20151119
  17. HYDROCHLOROTHIAZIDE. [Concomitant]
     Active Substance: HYDROCHLOROTHIAZIDE
     Route: 048
     Dates: start: 20140619
  18. TAVEGIL [Concomitant]
     Active Substance: CLEMASTINE FUMARATE
     Route: 042
     Dates: start: 20160329, end: 20160329
  19. ALTEPLASE. [Concomitant]
     Active Substance: ALTEPLASE
     Indication: PULMONARY EMBOLISM
     Route: 048
     Dates: start: 201006, end: 2016
  20. ALTEPLASE. [Concomitant]
     Active Substance: ALTEPLASE
     Route: 042
     Dates: start: 201701, end: 201701
  21. HYDROCHLOROTHIAZIDE. [Concomitant]
     Active Substance: HYDROCHLOROTHIAZIDE
     Indication: FLUID RETENTION
     Route: 048
     Dates: start: 201512
  22. FRAXIPARIN [Concomitant]
     Active Substance: NADROPARIN CALCIUM
     Indication: HAEMODILUTION
     Route: 058
     Dates: start: 201511, end: 20160615
  23. RANITIDIN [Concomitant]
     Active Substance: RANITIDINE HYDROCHLORIDE
     Route: 042
     Dates: start: 20160329, end: 20160329
  24. AMLODIPIN [Concomitant]
     Active Substance: AMLODIPINE BESYLATE
     Indication: HYPERTENSION
     Route: 048
     Dates: start: 20160429, end: 2016
  25. ALLOPURINOL. [Concomitant]
     Active Substance: ALLOPURINOL
     Route: 048
     Dates: start: 20151203

REACTIONS (1)
  - Urosepsis [Recovered/Resolved]

NARRATIVE: CASE EVENT DATE: 20160423
